FAERS Safety Report 6404765-9 (Version None)
Quarter: 2009Q4

REPORT INFORMATION
  Report Type: 
  Country: None (occurrence: None)
  Receive Date: 20091016
  Receipt Date: 20091007
  Transmission Date: 20100525
  Serious: Yes (Other)
  Sender: FDA-Public Use
  Company Number: US-ABBOTT-09P-163-0601335-00

PATIENT
  Sex: Female
  Weight: 83.99 kg

DRUGS (27)
  1. HUMIRA [Suspect]
     Indication: RHEUMATOID ARTHRITIS
     Dates: start: 20071207, end: 20090801
  2. HUMIRA [Suspect]
     Indication: CROHN'S DISEASE
     Dates: start: 20090801
  3. HUMIRA [Suspect]
     Indication: PSORIATIC ARTHROPATHY
  4. PREDNISONE [Concomitant]
     Indication: DRUG USE FOR UNKNOWN INDICATION
  5. METHOTREXATE [Concomitant]
     Indication: DRUG USE FOR UNKNOWN INDICATION
  6. SULFASALAZINE [Concomitant]
     Indication: DRUG USE FOR UNKNOWN INDICATION
     Dosage: FORM STRENGTH
  7. XANAX [Concomitant]
     Indication: ANXIETY
  8. ADDERALL 10 [Concomitant]
     Indication: ASTHENIA
  9. ATENOLOL [Concomitant]
     Indication: HYPERTENSION
  10. DULCOLAX [Concomitant]
     Indication: CONSTIPATION
  11. SENNA [Concomitant]
     Indication: CONSTIPATION
  12. VITAMIN B-12 [Concomitant]
     Indication: VITAMIN B COMPLEX DEFICIENCY
  13. FLEXERIL [Concomitant]
     Indication: RHEUMATOID ARTHRITIS
  14. LONOX [Concomitant]
     Indication: DIARRHOEA
  15. DIFLUCAN [Concomitant]
     Indication: DRUG USE FOR UNKNOWN INDICATION
  16. FOLIC ACID [Concomitant]
     Indication: RHEUMATOID ARTHRITIS
  17. VICODIN [Concomitant]
     Indication: PAIN
  18. FLINSTONE MULTIPLE VITAMINS [Concomitant]
     Indication: VITAMIN SUPPLEMENTATION
  19. NITROGLYCERIN [Concomitant]
     Indication: RAYNAUD'S PHENOMENON
  20. OXYCONTIN [Concomitant]
     Indication: PAIN
  21. PROTONIX [Concomitant]
     Indication: GASTROOESOPHAGEAL REFLUX DISEASE
  22. MIRALAX [Concomitant]
     Indication: CONSTIPATION
  23. ZANTAC [Concomitant]
     Indication: GASTROOESOPHAGEAL REFLUX DISEASE
  24. LAMICTAL [Concomitant]
     Indication: DEPRESSION
  25. XYLOCAINE GEL [Concomitant]
     Indication: PAIN
  26. SEROQUEL [Concomitant]
     Indication: DEPRESSION
  27. AMBIEN [Concomitant]
     Indication: SLEEP DISORDER THERAPY

REACTIONS (5)
  - BREAST MASS [None]
  - FOREIGN BODY [None]
  - LARGE INTESTINE PERFORATION [None]
  - OESOPHAGEAL PAIN [None]
  - OESOPHAGEAL PERFORATION [None]
